FAERS Safety Report 19996432 (Version 1)
Quarter: 2021Q4

REPORT INFORMATION
  Report Type: Spontaneous
  Country: FI (occurrence: FI)
  Receive Date: 20211026
  Receipt Date: 20211026
  Transmission Date: 20220303
  Serious: Yes (Congenital Anomaly)
  Sender: FDA-Public Use
  Company Number: None

PATIENT
  Sex: Male

DRUGS (1)
  1. VENLAFAXINE [Suspect]
     Active Substance: VENLAFAXINE HYDROCHLORIDE
     Indication: Mental disorder
     Dosage: 225 MILLIGRAM, QD
     Route: 064

REACTIONS (6)
  - Drug withdrawal syndrome neonatal [Recovered/Resolved with Sequelae]
  - Speech disorder developmental [Recovered/Resolved with Sequelae]
  - Foetal hypokinesia [Recovered/Resolved with Sequelae]
  - Muscle twitching [Recovered/Resolved with Sequelae]
  - Foetal exposure during pregnancy [Recovered/Resolved with Sequelae]
  - Fatigue [Recovered/Resolved with Sequelae]
